FAERS Safety Report 6552840-0 (Version None)
Quarter: 2010Q1

REPORT INFORMATION
  Report Type: 
  Country: None (occurrence: None)
  Receive Date: 20100122
  Receipt Date: 20100107
  Transmission Date: 20100710
  Serious: Yes (Hospitalization)
  Sender: FDA-Public Use
  Company Number: 2010AL000107

PATIENT
  Age: 68 Year
  Sex: Female

DRUGS (3)
  1. CARBAMAZEPINE [Suspect]
     Indication: TRIGEMINAL NEURALGIA
     Dosage: 800 MG; QD
  2. SPIRONOLACTONE [Suspect]
     Indication: HYPERTENSION
     Dosage: 100 MG;QD
  3. ATENOLOL [Concomitant]

REACTIONS (2)
  - HYPERTENSION [None]
  - SUPRAVENTRICULAR TACHYCARDIA [None]
